FAERS Safety Report 22133136 (Version 1)
Quarter: 2023Q1

REPORT INFORMATION
  Report Type: Spontaneous
  Country: US (occurrence: US)
  Receive Date: 20230324
  Receipt Date: 20230324
  Transmission Date: 20230418
  Serious: Yes (Other)
  Sender: FDA-Public Use
  Company Number: US-AUROBINDO-AUR-APL-2023-012218

PATIENT
  Sex: Female

DRUGS (10)
  1. AMIODARONE HYDROCHLORIDE [Suspect]
     Active Substance: AMIODARONE HYDROCHLORIDE
     Indication: Atrial tachycardia
     Dosage: 7 MICROGRAM/KILOGRAM/MINUTE
     Route: 042
  2. AMIODARONE HYDROCHLORIDE [Suspect]
     Active Substance: AMIODARONE HYDROCHLORIDE
     Dosage: 3.5 MICROGRAM/KILOGRAM/MINUTE
     Route: 042
  3. AMIODARONE HYDROCHLORIDE [Suspect]
     Active Substance: AMIODARONE HYDROCHLORIDE
     Dosage: 1 MICROGRAM/KILOGRAM/MINUTE
     Route: 042
  4. DIGOXIN [Suspect]
     Active Substance: DIGOXIN
     Indication: Atrial tachycardia
     Dosage: 16 MICROGRAM/KILOGRAM (LOADING DOSE)
     Route: 051
  5. DIGOXIN [Suspect]
     Active Substance: DIGOXIN
     Dosage: 3 MICROGRAM/KILOGRAM, TWO TIMES A DAY
     Route: 051
  6. ESMOLOL [Suspect]
     Active Substance: ESMOLOL HYDROCHLORIDE
     Indication: Atrial tachycardia
     Dosage: 250 MICROGRAM/KILOGRAM/MINUTE
     Route: 042
  7. SOTALOL HYDROCHLORIDE [Suspect]
     Active Substance: SOTALOL HYDROCHLORIDE
     Indication: Atrial tachycardia
     Dosage: 12 MILLIGRAM/SQ. METER, 3 TIMES A DAY
     Route: 065
  8. IVABRADINE [Suspect]
     Active Substance: IVABRADINE
     Indication: Product used for unknown indication
     Dosage: 0.1 MILLIGRAM/KILOGRAM, TWO TIMES A DAY
     Route: 065
  9. IVABRADINE [Suspect]
     Active Substance: IVABRADINE
     Dosage: 0.1 MILLIGRAM/KILOGRAM, 3 TIMES A DAY
  10. PROPRANOLOL [Suspect]
     Active Substance: PROPRANOLOL HYDROCHLORIDE
     Indication: Product used for unknown indication
     Dosage: 1 MILLIGRAM/KILOGRAM, ONCE A DAY (DIVIDED EVERY 6 HOURS ON POD 11)

REACTIONS (3)
  - Hypotension [Recovering/Resolving]
  - Heart rate decreased [Recovering/Resolving]
  - Drug ineffective [Unknown]
